FAERS Safety Report 8388277-1 (Version None)
Quarter: 2012Q2

REPORT INFORMATION
  Report Type: 
  Country: None (occurrence: None)
  Receive Date: 20120525
  Receipt Date: 20120521
  Transmission Date: 20120825
  Serious: Yes (Hospitalization)
  Sender: FDA-Public Use
  Company Number: US-TEVA-339633USA

PATIENT
  Sex: Female

DRUGS (11)
  1. CYTARABINE [Suspect]
     Indication: ACUTE LYMPHOCYTIC LEUKAEMIA
     Route: 037
     Dates: start: 20120416, end: 20120416
  2. ZANTAC [Concomitant]
     Dates: start: 20120416
  3. NYSTATIN [Concomitant]
     Dates: start: 20120422
  4. ONDANSETRON [Concomitant]
     Dates: start: 20120430
  5. DASATINIB [Suspect]
     Indication: ACUTE LYMPHOCYTIC LEUKAEMIA
     Dosage: 45 MILLIGRAM;
     Route: 048
     Dates: start: 20120430
  6. PEGASPARGASE [Suspect]
     Indication: ACUTE LYMPHOCYTIC LEUKAEMIA
     Dates: start: 20120419, end: 20120419
  7. VINCRISTINE [Suspect]
     Indication: ACUTE LYMPHOCYTIC LEUKAEMIA
     Dosage: 7 DAY
     Route: 042
     Dates: start: 20120416, end: 20120430
  8. DEXAMETHASONE [Suspect]
     Indication: ACUTE LYMPHOCYTIC LEUKAEMIA
     Dosage: 2/1 DAY
     Dates: start: 20120416, end: 20120429
  9. FUROSEMIDE [Concomitant]
     Dates: start: 20120427, end: 20120429
  10. DAUNORUBICIN HYDROCHLORIDE [Suspect]
     Indication: ACUTE LYMPHOCYTIC LEUKAEMIA
     Route: 042
     Dates: start: 20120416, end: 20120430
  11. METHOTREXATE [Suspect]
     Indication: ACUTE LYMPHOCYTIC LEUKAEMIA
     Dosage: ITRC
     Dates: start: 20120423, end: 20120423

REACTIONS (3)
  - PYREXIA [None]
  - DEVICE RELATED INFECTION [None]
  - NEUTROPHIL COUNT DECREASED [None]
